FAERS Safety Report 4519750-1 (Version None)
Quarter: 2004Q4

REPORT INFORMATION
  Report Type: 
  Country: None (occurrence: None)
  Receive Date: 20041207
  Receipt Date: 20041126
  Transmission Date: 20050328
  Serious: Yes (Hospitalization)
  Sender: FDA-Public Use
  Company Number: BE-ABBOTT-04P-013-0281733-00

PATIENT
  Sex: Male

DRUGS (2)
  1. DEPAKINE SYRUP [Suspect]
     Indication: CONVULSION PROPHYLAXIS
     Dosage: 3 INTAKES
     Route: 048
     Dates: start: 20040101, end: 20040101
  2. DEPAKINE SYRUP [Suspect]
     Route: 048

REACTIONS (5)
  - ANTICONVULSANT DRUG LEVEL DECREASED [None]
  - DRUG INEFFECTIVE [None]
  - HEMIPARESIS [None]
  - STATUS EPILEPTICUS [None]
  - TONSILLITIS [None]
